FAERS Safety Report 21263727 (Version 2)
Quarter: 2022Q3

REPORT INFORMATION
  Report Type: Spontaneous
  Country: JP (occurrence: JP)
  Receive Date: 20220829
  Receipt Date: 20220907
  Transmission Date: 20221026
  Serious: Yes (Hospitalization)
  Sender: FDA-Public Use
  Company Number: JP-JNJFOC-20220859412

PATIENT
  Age: 6 Decade
  Sex: Male

DRUGS (2)
  1. ONEDURO [Suspect]
     Active Substance: FENTANYL
     Indication: Pain
     Dosage: FENTANYL (ONE DAY MATRIX PATCH) 37.5MCG/H (12.5+25 MCG/HR)
     Route: 062
  2. ONEDURO [Suspect]
     Active Substance: FENTANYL
     Dosage: FENTANYL (ONE DAY MATRIX PATCH) 25MCG/HR
     Route: 062

REACTIONS (1)
  - Hospitalisation [Unknown]
